FAERS Safety Report 11410207 (Version 4)
Quarter: 2016Q1

REPORT INFORMATION
  Report Type: Report from Study
  Country: JP (occurrence: JP)
  Receive Date: 20150824
  Receipt Date: 20160210
  Transmission Date: 20160525
  Serious: Yes (Hospitalization)
  Sender: FDA-Public Use
  Company Number: JP-OTSUKA-2015_007752

PATIENT
  Age: 41 Year
  Sex: Male
  Weight: 75.1 kg

DRUGS (7)
  1. TOLVAPTAN [Suspect]
     Active Substance: TOLVAPTAN
     Dosage: 90 MG, UNK
     Route: 048
     Dates: start: 20150717, end: 20150814
  2. TOLVAPTAN [Suspect]
     Active Substance: TOLVAPTAN
     Dosage: 90 MG, UNK
     Route: 048
     Dates: start: 20150825, end: 20151005
  3. TOLVAPTAN [Suspect]
     Active Substance: TOLVAPTAN
     Dosage: 120 MG, UNK
     Route: 048
     Dates: start: 20151006
  4. CALBLOCK [Concomitant]
     Active Substance: AZELNIDIPINE
     Indication: PRODUCT USED FOR UNKNOWN INDICATION
     Dosage: 16 MG, DAILY DOSE
     Route: 048
     Dates: start: 20150206
  5. TOLVAPTAN [Suspect]
     Active Substance: TOLVAPTAN
     Dosage: 60 MG, UNK
     Route: 048
     Dates: start: 20150820, end: 20150824
  6. BLOPRESS [Concomitant]
     Active Substance: CANDESARTAN CILEXETIL
     Indication: PRODUCT USED FOR UNKNOWN INDICATION
     Dosage: 8 MG, DAILY DOSE
     Route: 048
  7. TOLVAPTAN [Suspect]
     Active Substance: TOLVAPTAN
     Indication: CONGENITAL CYSTIC KIDNEY DISEASE
     Dosage: 60 MG, DAILY DOSE (DIVIDED 2DOSES)
     Route: 048
     Dates: start: 20150703, end: 20150716

REACTIONS (1)
  - Cellulitis [Recovered/Resolved]

NARRATIVE: CASE EVENT DATE: 20150727
